FAERS Safety Report 8821015 (Version 2)
Quarter: 2015Q3

REPORT INFORMATION
  Report Type: Report from Study
  Country: US (occurrence: US)
  Receive Date: 20121002
  Receipt Date: 20150702
  Transmission Date: 20151125
  Serious: Yes (Death)
  Sender: FDA-Public Use
  Company Number: US-ROCHE-1130998

PATIENT
  Sex: Male

DRUGS (1)
  1. RITUXAN [Suspect]
     Active Substance: RITUXIMAB
     Indication: CHRONIC LYMPHOCYTIC LEUKAEMIA
     Dosage: DRUG INDICATION: LYMPHOID LEUKEMIA, CHRONIC, WITHOUT MENTION OF HAVING ACHIEVED REMISSION, FAILED RE
     Route: 065

REACTIONS (2)
  - Off label use [Unknown]
  - Death [Fatal]
